FAERS Safety Report 10032675 (Version 1)
Quarter: 2014Q1

REPORT INFORMATION
  Report Type: Report from Study
  Country: US (occurrence: US)
  Receive Date: 20140324
  Receipt Date: 20140324
  Transmission Date: 20141002
  Serious: Yes (Hospitalization)
  Sender: FDA-Public Use
  Company Number: US-SA-2014SA035876

PATIENT
  Age: 43 Year
  Sex: Male
  Weight: 80.03 kg

DRUGS (5)
  1. SARGRAMOSTIM [Suspect]
     Indication: METASTATIC MALIGNANT MELANOMA
     Route: 065
     Dates: end: 20140314
  2. IPILIMUMAB [Suspect]
     Indication: METASTATIC MALIGNANT MELANOMA
     Route: 065
     Dates: end: 20140314
  3. CHLORPHENIRAMINE MALEATE/PARACETAMOL/PHENYLEPHRINE BITARTRATE [Concomitant]
     Route: 048
  4. DEXTROMETHORPHAN/DOXYLAMINE/PARACETAMOL/PSEUDOEPHEDRINE [Concomitant]
     Route: 048
  5. ASPIRIN [Concomitant]
     Route: 048

REACTIONS (2)
  - Hepatic haematoma [Not Recovered/Not Resolved]
  - Transaminases increased [Not Recovered/Not Resolved]
